FAERS Safety Report 5415190-1 (Version None)
Quarter: 2007Q3

REPORT INFORMATION
  Report Type: 
  Country: None (occurrence: None)
  Receive Date: 20070815
  Receipt Date: 20070718
  Transmission Date: 20080115
  Serious: No
  Sender: FDA-Public Use
  Company Number: A0664828A

PATIENT
  Age: 62 Year
  Sex: Male

DRUGS (13)
  1. COREG CR [Suspect]
     Indication: HYPERTENSION
     Dosage: 40MG PER DAY
     Route: 048
     Dates: start: 20070101
  2. AGGRENOX [Concomitant]
  3. LASIX [Concomitant]
  4. LOTREL [Concomitant]
  5. NIASPAN [Concomitant]
  6. OMACOR [Concomitant]
  7. PAXIL [Concomitant]
  8. QVAR 40 [Concomitant]
  9. ROZEREM [Concomitant]
  10. TOPROL-XL [Concomitant]
  11. VYTORIN [Concomitant]
  12. ALBUTEROL [Concomitant]
  13. NITROGLYCERIN [Concomitant]

REACTIONS (1)
  - DRUG INEFFECTIVE [None]
